FAERS Safety Report 17636088 (Version 1)
Quarter: 2020Q2

REPORT INFORMATION
  Report Type: Spontaneous
  Country: JP (occurrence: JP)
  Receive Date: 20200407
  Receipt Date: 20200407
  Transmission Date: 20200713
  Serious: Yes (Other)
  Sender: FDA-Public Use
  Company Number: JP-ASTRAZENECA-2020SE40523

PATIENT
  Age: 55 Year
  Sex: Female

DRUGS (4)
  1. TAGRISSO [Suspect]
     Active Substance: OSIMERTINIB
     Indication: NON-SMALL CELL LUNG CANCER
     Route: 048
     Dates: start: 20200312
  2. FEXOFENADINE HYDROCHLORIDE. [Concomitant]
     Active Substance: FEXOFENADINE HYDROCHLORIDE
  3. IRESSA [Suspect]
     Active Substance: GEFITINIB
     Indication: NON-SMALL CELL LUNG CANCER
     Route: 048
  4. BIO-THREE [Concomitant]
     Active Substance: HERBALS

REACTIONS (13)
  - Flank pain [Unknown]
  - Myalgia [Unknown]
  - Influenza [Unknown]
  - Musculoskeletal pain [Unknown]
  - Diarrhoea [Unknown]
  - Sleep disorder due to a general medical condition [Unknown]
  - Adverse drug reaction [Unknown]
  - Metastases to bone [Unknown]
  - Neoplasm progression [Unknown]
  - Gene mutation [Unknown]
  - Pain in extremity [Unknown]
  - Muscle spasms [Unknown]
  - Arthralgia [Unknown]

NARRATIVE: CASE EVENT DATE: 202001
